FAERS Safety Report 10566634 (Version 1)
Quarter: 2014Q4

REPORT INFORMATION
  Report Type: Spontaneous
  Country: US (occurrence: US)
  Receive Date: 20141105
  Receipt Date: 20141105
  Transmission Date: 20150529
  Serious: Yes (Hospitalization, Other)
  Sender: FDA-Public Use
  Company Number: US-PFIZER INC-2014303813

PATIENT
  Sex: Female
  Weight: 2.9 kg

DRUGS (6)
  1. BETHANECHOL [Concomitant]
     Active Substance: BETHANECHOL
     Dosage: UNK
  2. AZITHROMYCIN [Suspect]
     Active Substance: AZITHROMYCIN ANHYDROUS
     Indication: PERTUSSIS
     Dosage: 10 MG/KG, UNK
     Route: 048
  3. FERROUS SULFATE [Concomitant]
     Active Substance: FERROUS SULFATE\FERROUS SULFATE, DRIED
     Dosage: UNK
  4. PREVACID [Concomitant]
     Active Substance: LANSOPRAZOLE
     Dosage: UNK
  5. POLY-VI-SOL [Concomitant]
     Dosage: UNK
  6. CAFFEINE. [Concomitant]
     Active Substance: CAFFEINE
     Dosage: UNK

REACTIONS (1)
  - Pyloric stenosis [Not Recovered/Not Resolved]

NARRATIVE: CASE EVENT DATE: 20040909
